FAERS Safety Report 8120162 (Version 3)
Quarter: 2015Q3

REPORT INFORMATION
  Report Type: Report from Study
  Country: ZA (occurrence: ZA)
  Receive Date: 20110905
  Receipt Date: 20150922
  Transmission Date: 20151125
  Serious: Yes (Hospitalization)
  Sender: FDA-Public Use
  Company Number: PHHY2011ZA77689

PATIENT
  Sex: Female

DRUGS (5)
  1. ACLASTA [Suspect]
     Active Substance: ZOLEDRONIC ACID
     Dosage: 1 DF (5 MG/100 ML), UNK
     Route: 042
     Dates: start: 201108
  2. ACLASTA [Suspect]
     Active Substance: ZOLEDRONIC ACID
     Dosage: 1 DF (5 MG/100 ML), UNK
     Route: 042
     Dates: start: 201409
  3. ACLASTA [Suspect]
     Active Substance: ZOLEDRONIC ACID
     Dosage: 1 DF (5 MG/100 ML), UNK
     Route: 042
     Dates: start: 2013
  4. ACLASTA [Suspect]
     Active Substance: ZOLEDRONIC ACID
     Indication: OSTEOPOROSIS
     Dosage: 1 DF (5 MG/100 ML), UNK
     Route: 042
     Dates: start: 201009
  5. ACLASTA [Suspect]
     Active Substance: ZOLEDRONIC ACID
     Dosage: 1 DF (5 MG/100 ML), UNK
     Route: 042
     Dates: start: 201208

REACTIONS (4)
  - Spinal disorder [Not Recovered/Not Resolved]
  - Bone density decreased [Unknown]
  - Nephrolithiasis [Recovered/Resolved]
  - Musculoskeletal discomfort [Not Recovered/Not Resolved]
